FAERS Safety Report 6897023-X (Version None)
Quarter: 2010Q3

REPORT INFORMATION
  Report Type: 
  Country: None (occurrence: None)
  Receive Date: 20100802
  Receipt Date: 20070308
  Transmission Date: 20110219
  Serious: Yes (Other)
  Sender: FDA-Public Use
  Company Number: US-PFIZER INC-2007018498

PATIENT
  Age: 72 Year
  Sex: Female

DRUGS (3)
  1. LYRICA [Suspect]
     Dates: start: 20051101
  2. MAXZIDE [Concomitant]
  3. COZAAR [Concomitant]

REACTIONS (1)
  - DRUG DEPENDENCE [None]
